FAERS Safety Report 4628804-0 (Version None)
Quarter: 2005Q2

REPORT INFORMATION
  Report Type: 
  Country: None (occurrence: None)
  Receive Date: 20050406
  Receipt Date: 20050321
  Transmission Date: 20051028
  Serious: Yes (Death, Life-Threatening, Hospitalization, Disabling)
  Sender: FDA-Public Use
  Company Number: 2005BI002407

PATIENT
  Age: 69 Year
  Sex: Male
  Weight: 80 kg

DRUGS (16)
  1. NATALIZUMAB [Suspect]
     Indication: CROHN'S DISEASE
     Dosage: 300 MG;QM;IV
     Route: 042
     Dates: start: 20030702, end: 20041124
  2. PROTONIX [Concomitant]
  3. PENTASA [Concomitant]
  4. LOMOTIL [Concomitant]
  5. PROPRANOLOL [Concomitant]
  6. ZESTRIL [Concomitant]
  7. MIACALCIN [Concomitant]
  8. LASIX [Concomitant]
  9. SPIRONOLACTONE [Concomitant]
  10. DARVON-N [Concomitant]
  11. CALCIUM GLUCONATE [Concomitant]
  12. VICODIN [Concomitant]
  13. VIOXX [Concomitant]
  14. AMBIEN [Concomitant]
  15. POTASSIUM CHLORIDE [Concomitant]
  16. LACTULOSE [Concomitant]

REACTIONS (25)
  - ANAEMIA [None]
  - EROSIVE DUODENITIS [None]
  - GASTRIC ULCER [None]
  - GASTRODUODENITIS [None]
  - HEPATIC CIRRHOSIS [None]
  - HEPATIC ENCEPHALOPATHY [None]
  - HEPATIC FAILURE [None]
  - HEPATIC STEATOSIS [None]
  - HEPATORENAL SYNDROME [None]
  - HYPOTENSION [None]
  - LACTIC ACIDOSIS [None]
  - MULTI-ORGAN FAILURE [None]
  - MYOCARDIAL FIBROSIS [None]
  - MYOCARDIAL ISCHAEMIA [None]
  - PNEUMOCYSTIS JIROVECI PNEUMONIA [None]
  - PNEUMONIA BACTERIAL [None]
  - PORTAL HYPERTENSION [None]
  - PULMONARY OEDEMA [None]
  - RENAL FAILURE ACUTE [None]
  - RENAL TUBULAR NECROSIS [None]
  - RESPIRATORY FAILURE [None]
  - SEPSIS [None]
  - VARICES OESOPHAGEAL [None]
  - VARICOSE VEIN [None]
  - WHITE BLOOD CELL COUNT INCREASED [None]
